FAERS Safety Report 7026030-1 (Version None)
Quarter: 2010Q4

REPORT INFORMATION
  Report Type: 
  Country: None (occurrence: None)
  Receive Date: 20101004
  Receipt Date: 20100923
  Transmission Date: 20110411
  Serious: No
  Sender: FDA-Public Use
  Company Number: US-BIOGENIDEC-2010BI033576

PATIENT
  Age: 40 Year
  Sex: Female

DRUGS (3)
  1. TYSABRI [Suspect]
     Indication: MULTIPLE SCLEROSIS
     Route: 042
     Dates: start: 20080724, end: 20081125
  2. TYSABRI [Suspect]
     Route: 042
     Dates: start: 20100616
  3. AVONEX [Concomitant]
     Route: 030
     Dates: start: 20060713

REACTIONS (10)
  - BURNING SENSATION [None]
  - DYSPHONIA [None]
  - FATIGUE [None]
  - HEADACHE [None]
  - INFLUENZA LIKE ILLNESS [None]
  - MULTIPLE ALLERGIES [None]
  - NUCLEAR MAGNETIC RESONANCE IMAGING ABNORMAL [None]
  - PAIN [None]
  - SINUS DISORDER [None]
  - TREMOR [None]
